FAERS Safety Report 17185214 (Version 1)
Quarter: 2019Q4

REPORT INFORMATION
  Report Type: Spontaneous
  Country: FR (occurrence: FR)
  Receive Date: 20191220
  Receipt Date: 20191220
  Transmission Date: 20200122
  Serious: Yes (Other)
  Sender: FDA-Public Use
  Company Number: FR-MYLANLABS-2019M1125856

PATIENT
  Age: 84 Year
  Sex: Female
  Weight: 48 kg

DRUGS (7)
  1. CARDENSIEL [Concomitant]
     Active Substance: BISOPROLOL FUMARATE
     Dosage: 1.25 MILLIGRAM, QD
     Route: 048
  2. LANZOR [Concomitant]
     Active Substance: LANSOPRAZOLE
     Route: 048
     Dates: start: 20190704
  3. LEVOTHYROX [Concomitant]
     Active Substance: LEVOTHYROXINE
     Dosage: 75 MILLIGRAM, QD
     Route: 048
  4. LOVENOX [Concomitant]
     Active Substance: ENOXAPARIN SODIUM
     Indication: THROMBOSIS PROPHYLAXIS
     Dosage: 0.4 MILLILITER, QD
     Route: 058
     Dates: start: 20190606
  5. SPECIAFOLDINE [Concomitant]
     Active Substance: FOLIC ACID
     Dosage: 15 MILLIGRAM, QD
     Route: 048
  6. LASILIX FAIBLE [Concomitant]
     Active Substance: FUROSEMIDE
     Dosage: 20 MILLIGRAM, QD
     Route: 048
  7. VANCOMYCIN MYLAN [Suspect]
     Active Substance: VANCOMYCIN
     Indication: DEVICE RELATED INFECTION
     Dosage: 1.2 GRAM, QD
     Route: 041
     Dates: start: 20190626, end: 20190707

REACTIONS (1)
  - Infusion site thrombosis [Recovering/Resolving]

NARRATIVE: CASE EVENT DATE: 20190707
